FAERS Safety Report 7986707-8 (Version None)
Quarter: 2011Q4

REPORT INFORMATION
  Report Type: 
  Country: None (occurrence: None)
  Receive Date: 20111216
  Receipt Date: 20110816
  Transmission Date: 20120403
  Serious: No
  Sender: FDA-Public Use
  Company Number: US-BRISTOL-MYERS SQUIBB COMPANY-15975089

PATIENT
  Age: 48 Year
  Sex: Male

DRUGS (3)
  1. COGENTIN [Suspect]
  2. ABILIFY [Suspect]
     Indication: PSYCHOTIC DISORDER
     Dosage: INITIALLY GIVEN 10MG,THEN INCREASED TO 15MG,THE AGAIN REDUCED TO 2MG
  3. ARICEPT [Suspect]

REACTIONS (1)
  - TARDIVE DYSKINESIA [None]
